FAERS Safety Report 13541440 (Version 4)
Quarter: 2018Q2

REPORT INFORMATION
  Report Type: Spontaneous
  Country: US (occurrence: US)
  Receive Date: 20170512
  Receipt Date: 20180530
  Transmission Date: 20180711
  Serious: No
  Sender: FDA-Public Use
  Company Number: US-PFIZER INC-2017203717

PATIENT
  Sex: Male

DRUGS (1)
  1. HALCION [Suspect]
     Active Substance: TRIAZOLAM
     Indication: SLEEP DISORDER
     Dosage: 0.25 MG AND A HALF OF 0.25

REACTIONS (4)
  - Suspected counterfeit product [Unknown]
  - Drug ineffective [Unknown]
  - Hallucination [Unknown]
  - Product lot number issue [Unknown]
